FAERS Safety Report 5734568-X (Version None)
Quarter: 2008Q2

REPORT INFORMATION
  Report Type: 
  Country: None (occurrence: None)
  Receive Date: 20080508
  Receipt Date: 20080508
  Transmission Date: 20081010
  Serious: Yes (Other)
  Sender: FDA-Public Use
  Company Number: None

PATIENT
  Age: 59 Year
  Sex: Female
  Weight: 58 kg

DRUGS (2)
  1. FENTANYL-100 [Suspect]
  2. BUPIVACAINE [Suspect]

REACTIONS (1)
  - BLOOD PRESSURE SYSTOLIC DECREASED [None]
